FAERS Safety Report 6237747-0 (Version None)
Quarter: 2009Q2

REPORT INFORMATION
  Report Type: 
  Country: None (occurrence: None)
  Receive Date: 20090618
  Receipt Date: 20090603
  Transmission Date: 20091009
  Serious: Yes (Hospitalization)
  Sender: FDA-Public Use
  Company Number: DSU-2009-01164

PATIENT
  Age: 76 Year
  Sex: Male
  Weight: 175 kg

DRUGS (4)
  1. AZOR [Suspect]
     Indication: HYPERTENSION
     Dosage: 5/20 MG (QD), PER ORAL; 5/20 MG (QD), PER ORAL
     Route: 048
     Dates: start: 20090301, end: 20090501
  2. AZOR [Suspect]
     Indication: HYPERTENSION
     Dosage: 5/20 MG (QD), PER ORAL; 5/20 MG (QD), PER ORAL
     Route: 048
     Dates: start: 20090525, end: 20090528
  3. FOLIC ACID (FOLIC ACID) (TABLET) (FOLIC ACID) [Concomitant]
  4. LIPITOR [Concomitant]

REACTIONS (6)
  - BLOOD PRESSURE DECREASED [None]
  - LOSS OF CONSCIOUSNESS [None]
  - OEDEMA [None]
  - RASH GENERALISED [None]
  - RASH PRURITIC [None]
  - RENAL FAILURE [None]
